FAERS Safety Report 24124701 (Version 1)
Quarter: 2024Q3

REPORT INFORMATION
  Report Type: Spontaneous
  Country: US (occurrence: US)
  Receive Date: 20240723
  Receipt Date: 20240723
  Transmission Date: 20241016
  Serious: Yes (Other)
  Sender: AMGEN
  Company Number: US-AMGEN-USASP2024143618

PATIENT
  Sex: Male

DRUGS (5)
  1. PROCYSBI [Suspect]
     Active Substance: CYSTEAMINE BITARTRATE
     Indication: Amino acid metabolism disorder
     Dosage: 25 MILLIGRAM, BID (60/25MG)
     Route: 065
  2. PROCYSBI [Suspect]
     Active Substance: CYSTEAMINE BITARTRATE
     Dosage: 850 MILLIGRAM, BID (660/75MG)
     Route: 065
  3. LISINOPRIL [Concomitant]
     Active Substance: LISINOPRIL
     Dosage: UNK
     Route: 065
  4. LEVOTHYROXINE SODIUM [Concomitant]
     Active Substance: LEVOTHYROXINE SODIUM
     Dosage: UNK
     Route: 065
  5. CARVEDILOL [Concomitant]
     Active Substance: CARVEDILOL
     Dosage: UNK
     Route: 065

REACTIONS (4)
  - Dialysis [Unknown]
  - Feeding disorder [Unknown]
  - Tooth disorder [Unknown]
  - Off label use [Unknown]
